FAERS Safety Report 23337640 (Version 1)
Quarter: 2023Q4

REPORT INFORMATION
  Report Type: Spontaneous
  Country: US (occurrence: US)
  Receive Date: 20231226
  Receipt Date: 20231226
  Transmission Date: 20240109
  Serious: No
  Sender: FDA-Public Use
  Company Number: US-ABBVIE-5543065

PATIENT
  Age: 75 Year
  Sex: Male
  Weight: 86.18 kg

DRUGS (2)
  1. VRAYLAR [Suspect]
     Active Substance: CARIPRAZINE
     Indication: Product used for unknown indication
     Route: 065
  2. DUPILUMAB [Suspect]
     Active Substance: DUPILUMAB
     Indication: Product used for unknown indication
     Route: 065

REACTIONS (6)
  - Neck pain [Unknown]
  - Agitation [Unknown]
  - Musculoskeletal stiffness [Unknown]
  - Headache [Unknown]
  - Injection site pain [Unknown]
  - Anger [Unknown]

NARRATIVE: CASE EVENT DATE: 20231101
